FAERS Safety Report 4373133-6 (Version None)
Quarter: 2004Q2

REPORT INFORMATION
  Report Type: 
  Country: None (occurrence: None)
  Receive Date: 20040603
  Receipt Date: 20040518
  Transmission Date: 20050107
  Serious: Yes (Hospitalization, Other)
  Sender: FDA-Public Use
  Company Number: USA040567939

PATIENT
  Age: 50 Year
  Sex: Male

DRUGS (4)
  1. HUMULIN R [Suspect]
     Dates: start: 19970101
  2. HUMULIN 70/30 [Suspect]
     Dates: start: 19970101
  3. ACTOS [Concomitant]
  4. COLCHICINE [Concomitant]

REACTIONS (1)
  - CARDIAC FAILURE CONGESTIVE [None]
